FAERS Safety Report 6876110-6 (Version None)
Quarter: 2010Q3

REPORT INFORMATION
  Report Type: 
  Country: None (occurrence: None)
  Receive Date: 20100727
  Receipt Date: 20100719
  Transmission Date: 20110219
  Serious: Yes (Other)
  Sender: FDA-Public Use
  Company Number: A0747057A

PATIENT
  Age: 77 Year
  Sex: Female

DRUGS (8)
  1. ADVAIR DISKUS 100/50 [Suspect]
     Indication: CHRONIC OBSTRUCTIVE PULMONARY DISEASE
     Dosage: 1PUFF TWICE PER DAY
     Route: 055
     Dates: start: 20050101
  2. IPRATROPIUM BROMIDE [Concomitant]
  3. ALBUTEROL [Concomitant]
  4. ANTIHYPERTENSIVE [Concomitant]
  5. ANTI-CHOLESTEROL MEDICATION [Concomitant]
  6. VITAMINS [Concomitant]
  7. COQ10 [Concomitant]
  8. UNKNOWN [Concomitant]

REACTIONS (4)
  - CATARACT [None]
  - DYSPNOEA [None]
  - TREATMENT NONCOMPLIANCE [None]
  - VISUAL ACUITY REDUCED [None]
